FAERS Safety Report 24658152 (Version 1)
Quarter: 2024Q4

REPORT INFORMATION
  Report Type: Spontaneous
  Country: GB (occurrence: GB)
  Receive Date: 20241125
  Receipt Date: 20241125
  Transmission Date: 20250114
  Serious: Yes (Other)
  Sender: AUROBINDO
  Company Number: GB-MHRA-TPP7968699C970259YC1731404964515

PATIENT
  Age: 81 Year
  Sex: Female
  Weight: 63 kg

DRUGS (5)
  1. CLOPIDOGREL [Suspect]
     Active Substance: CLOPIDOGREL BISULFATE
     Indication: Ill-defined disorder
     Dosage: 75 MILLIGRAM, ONCE A DAY (IN THE MORNING)
     Route: 065
     Dates: start: 20241022
  2. ATORVASTATIN [Concomitant]
     Active Substance: ATORVASTATIN
     Indication: Ill-defined disorder
     Dosage: 1 DOSAGE FORM, ONCE A DAY (TAKE ONE TABLET EACH NIGHT)
     Route: 065
     Dates: start: 20241022
  3. LANSOPRAZOLE [Concomitant]
     Active Substance: LANSOPRAZOLE
     Indication: Ill-defined disorder
     Dosage: 1 DOSAGE FORM, ONCE A DAY
     Route: 065
     Dates: start: 20241024
  4. STRIVIT D3 [Concomitant]
     Indication: Ill-defined disorder
     Dosage: 1 DOSAGE FORM, ONCE A DAY
     Route: 065
     Dates: start: 20221128
  5. CARBOMER [Concomitant]
     Active Substance: CARBOMER
     Indication: Ill-defined disorder
     Dosage: UNK, AS DIRECTED
     Route: 065
     Dates: start: 20230915

REACTIONS (2)
  - Contusion [Recovered/Resolved]
  - Hypertension [Recovered/Resolved]
